FAERS Safety Report 21229253 (Version 1)
Quarter: 2022Q3

REPORT INFORMATION
  Report Type: Report from Study
  Country: CA (occurrence: CA)
  Receive Date: 20220818
  Receipt Date: 20220818
  Transmission Date: 20221027
  Serious: Yes (Other)
  Sender: FDA-Public Use
  Company Number: CA-ABBVIE-22K-028-4460996-00

PATIENT
  Sex: Male
  Weight: 74.6 kg

DRUGS (2)
  1. HUMIRA [Suspect]
     Active Substance: ADALIMUMAB
     Indication: Crohn^s disease
     Route: 058
     Dates: end: 20220623
  2. PREDNISONE [Concomitant]
     Active Substance: PREDNISONE
     Indication: Crohn^s disease
     Dosage: 8 WEEK TAPER
     Route: 048
     Dates: start: 2019, end: 2020

REACTIONS (2)
  - Intestinal fistula [Recovered/Resolved]
  - Enteritis [Recovered/Resolved]
